FAERS Safety Report 24388176 (Version 1)
Quarter: 2024Q4

REPORT INFORMATION
  Report Type: Spontaneous
  Country: FR (occurrence: FR)
  Receive Date: 20241002
  Receipt Date: 20241002
  Transmission Date: 20250115
  Serious: Yes (Other)
  Sender: MERCK
  Company Number: None

PATIENT
  Age: 64 Year
  Sex: Male
  Weight: 87 kg

DRUGS (1)
  1. KEYTRUDA [Suspect]
     Active Substance: PEMBROLIZUMAB
     Indication: Sarcomatoid carcinoma of the lung
     Dosage: 400MG X1/CYCLE (EVERY 6 WEEKS)
     Route: 042
     Dates: start: 202212, end: 20240515

REACTIONS (1)
  - Lichenoid keratosis [Recovering/Resolving]

NARRATIVE: CASE EVENT DATE: 20240501
